FAERS Safety Report 4350007-8 (Version None)
Quarter: 2004Q2

REPORT INFORMATION
  Report Type: 
  Country: None (occurrence: None)
  Receive Date: 20040428
  Receipt Date: 20040428
  Transmission Date: 20050107
  Serious: Yes (Life-Threatening, Hospitalization)
  Sender: FDA-Public Use
  Company Number: None

PATIENT
  Age: 86 Year
  Sex: Male
  Weight: 81.6 kg

DRUGS (2)
  1. HUMULIN 70/30 [Suspect]
  2. METFORMIN HCL [Suspect]

REACTIONS (1)
  - HYPOGLYCAEMIA [None]
